FAERS Safety Report 15295140 (Version 2)
Quarter: 2018Q4

REPORT INFORMATION
  Report Type: Spontaneous
  Country: US (occurrence: US)
  Receive Date: 20180820
  Receipt Date: 20181001
  Transmission Date: 20190204
  Serious: No
  Sender: FDA-Public Use
  Company Number: US-PFIZER INC-2018332624

PATIENT
  Age: 48 Year
  Sex: Male
  Weight: 163.26 kg

DRUGS (1)
  1. TESTOSTERONE CIPIONATE [Suspect]
     Active Substance: TESTOSTERONE
     Dosage: UNK UNK, WEEKLY (ONCE A WEEK ONE TIME EVERY SEVEN DAYS)
     Dates: start: 2013

REACTIONS (1)
  - Drug ineffective [Unknown]
